FAERS Safety Report 10345137 (Version 3)
Quarter: 2015Q2

REPORT INFORMATION
  Report Type: Report from Study
  Country: DE (occurrence: DE)
  Receive Date: 20140728
  Receipt Date: 20150529
  Transmission Date: 20150821
  Serious: Yes (Hospitalization, Other)
  Sender: FDA-Public Use
  Company Number: DE-SA-2014SA097201

PATIENT
  Age: 78 Year
  Sex: Female

DRUGS (12)
  1. ESSENTIAL OILS NOS [Concomitant]
     Dates: start: 201309, end: 201310
  2. BISOPROLOL [Concomitant]
     Active Substance: BISOPROLOL
     Indication: TACHYCARDIA
     Dates: start: 20130720
  3. VALSARTAN. [Concomitant]
     Active Substance: VALSARTAN
     Indication: HYPERTENSION
     Dates: start: 201103
  4. HYDROCHLOROTHIAZIDE. [Concomitant]
     Active Substance: HYDROCHLOROTHIAZIDE
     Indication: HYPERTENSION
     Dates: start: 20130721
  5. PHENPROCOUMON [Concomitant]
     Active Substance: PHENPROCOUMON
     Indication: EMBOLISM VENOUS
     Dates: start: 2012, end: 201310
  6. PANTOPRAZOLE [Concomitant]
     Active Substance: PANTOPRAZOLE SODIUM
     Indication: GASTRITIS
     Dates: start: 201309
  7. CLEXANE [Concomitant]
     Active Substance: ENOXAPARIN SODIUM
     Dates: start: 20131018
  8. DRONEDARONE [Suspect]
     Active Substance: DRONEDARONE
     Indication: ATRIAL FIBRILLATION
     Route: 065
     Dates: start: 20130720, end: 20131018
  9. METHIZOL [Concomitant]
     Active Substance: METHIMAZOLE
     Indication: THYROID DISORDER
     Dates: start: 201103, end: 201310
  10. IBUPROFEN. [Concomitant]
     Active Substance: IBUPROFEN
     Indication: GASTRITIS
     Dates: start: 2011, end: 201310
  11. DIGITOXIN [Concomitant]
     Active Substance: DIGITOXIN
     Dates: start: 20131015
  12. CARMEN [Concomitant]
     Active Substance: LERCANIDIPINE
     Indication: HYPERTENSION
     Dates: start: 20130721

REACTIONS (3)
  - Renal failure [Not Recovered/Not Resolved]
  - Transient ischaemic attack [Recovered/Resolved]
  - Colon cancer [Recovered/Resolved]

NARRATIVE: CASE EVENT DATE: 20131002
